FAERS Safety Report 5838059-7 (Version None)
Quarter: 2008Q3

REPORT INFORMATION
  Report Type: 
  Country: None (occurrence: None)
  Receive Date: 20080808
  Receipt Date: 20080423
  Transmission Date: 20090109
  Serious: No
  Sender: FDA-Public Use
  Company Number: A0724348A

PATIENT
  Age: 61 Year
  Sex: Female

DRUGS (6)
  1. PAXIL [Suspect]
     Indication: DEPRESSION
     Dosage: 30MG PER DAY
     Route: 048
     Dates: start: 20070101, end: 20080301
  2. WELLBUTRIN XL [Suspect]
     Indication: DEPRESSION
     Dosage: 150MG PER DAY
     Route: 048
     Dates: start: 20080401, end: 20080410
  3. BLOOD PRESSURE MEDICATION [Concomitant]
  4. CHOLESTEROL REDUCING AGENT [Concomitant]
  5. ARTHRITIS MEDICATION [Concomitant]
  6. UNKNOWN STOMACH MEDICATION [Concomitant]

REACTIONS (7)
  - DIZZINESS [None]
  - HEADACHE [None]
  - MALAISE [None]
  - NAUSEA [None]
  - TREMOR [None]
  - VISION BLURRED [None]
  - WEIGHT INCREASED [None]
